FAERS Safety Report 5476904-8 (Version None)
Quarter: 2007Q3

REPORT INFORMATION
  Report Type: 
  Country: None (occurrence: None)
  Receive Date: 20070904
  Receipt Date: 20070703
  Transmission Date: 20080115
  Serious: Yes (Other)
  Sender: FDA-Public Use
  Company Number: PHEH2007US09621

PATIENT
  Sex: Female

DRUGS (1)
  1. ENABLEX [Suspect]
     Indication: URINARY INCONTINENCE
     Dosage: 15 MG

REACTIONS (4)
  - CONFUSIONAL STATE [None]
  - DRY MOUTH [None]
  - INAPPROPRIATE AFFECT [None]
  - PARAESTHESIA [None]
